FAERS Safety Report 4765929-3 (Version None)
Quarter: 2005Q3

REPORT INFORMATION
  Report Type: 
  Country: None (occurrence: None)
  Receive Date: 20050906
  Receipt Date: 20050819
  Transmission Date: 20060218
  Serious: Yes (Hospitalization)
  Sender: FDA-Public Use
  Company Number: GBS050818233

PATIENT
  Age: 43 Year
  Sex: Male

DRUGS (7)
  1. FLUOXETINE [Suspect]
     Dosage: 600 MG
  2. AMLODIPINE [Concomitant]
  3. FOLIC ACID [Concomitant]
  4. ASPIRIN [Concomitant]
  5. ACETAMINOPHEN [Concomitant]
  6. CITALOPRAM [Concomitant]
  7. PERINDOPRIL [Concomitant]

REACTIONS (8)
  - ANURIA [None]
  - BLOOD PRESSURE DECREASED [None]
  - HAEMODYNAMIC INSTABILITY [None]
  - HYPOKALAEMIA [None]
  - INTENTIONAL MISUSE [None]
  - METABOLIC ACIDOSIS [None]
  - RENAL FAILURE [None]
  - URINARY RETENTION [None]
